FAERS Safety Report 9579579 (Version 2)
Quarter: 2013Q4

REPORT INFORMATION
  Report Type: Spontaneous
  Country: US (occurrence: US)
  Receive Date: 20131001
  Receipt Date: 20131001
  Transmission Date: 20140711
  Serious: No
  Sender: FDA-Public Use
  Company Number: US-AMGEN-USASP2013001336

PATIENT
  Age: 81 Year
  Sex: Female
  Weight: 61.68 kg

DRUGS (10)
  1. ENBREL [Suspect]
     Indication: PRODUCT USED FOR UNKNOWN INDICATION
     Dosage: 50 MG, 2 TIMES/WK
     Route: 058
  2. METFORMIN [Concomitant]
     Dosage: 500 MG, UNK
  3. BENAZEPRIL [Concomitant]
     Dosage: 10 MG, UNK
  4. SIMVASTATIN [Concomitant]
     Dosage: 40 MG, UNK
  5. ACTONEL [Concomitant]
     Dosage: 75 MG, UNK
  6. CLONIDINE [Concomitant]
     Dosage: 0.1 MG, UNK
  7. METOPROLOL TARTRATE [Concomitant]
     Dosage: 25 MG, UNK
  8. FISH OIL [Concomitant]
     Dosage: UNK
  9. HYDROCHLOROTHIAZIDE W/TRIAMTERENE [Concomitant]
     Dosage: 25-50 MG
  10. MULTIVITAMINS, PLAIN [Concomitant]
     Dosage: UNK

REACTIONS (2)
  - Dermatitis psoriasiform [Unknown]
  - Psoriasis [Unknown]
